FAERS Safety Report 5942821-X (Version None)
Quarter: 2008Q4

REPORT INFORMATION
  Report Type: 
  Country: None (occurrence: None)
  Receive Date: 20081103
  Receipt Date: 20081022
  Transmission Date: 20090506
  Serious: Yes (Hospitalization)
  Sender: FDA-Public Use
  Company Number: 2008BI015885

PATIENT
  Age: 32 Year
  Sex: Female

DRUGS (3)
  1. AVONEX [Suspect]
     Indication: MULTIPLE SCLEROSIS
     Dosage: 30 UG QW;IM
     Route: 030
     Dates: start: 20080315
  2. CON MED [Concomitant]
  3. PREV MEDS [Concomitant]

REACTIONS (2)
  - LIGAMENT RUPTURE [None]
  - PATELLA FRACTURE [None]
